FAERS Safety Report 13468809 (Version 2)
Quarter: 2018Q2

REPORT INFORMATION
  Report Type: Spontaneous
  Country: US (occurrence: US)
  Receive Date: 20170421
  Receipt Date: 20180418
  Transmission Date: 20180711
  Serious: No
  Sender: FDA-Public Use
  Company Number: US-SA-2017SA058031

PATIENT
  Age: 69 Year
  Sex: Male
  Weight: 57.6 kg

DRUGS (4)
  1. CAPRELSA [Suspect]
     Active Substance: VANDETANIB
     Indication: PAPILLARY THYROID CANCER
     Route: 048
     Dates: start: 201703
  2. CAPRELSA [Suspect]
     Active Substance: VANDETANIB
     Indication: RENAL CELL CARCINOMA
     Route: 048
     Dates: start: 20170301
  3. CAPRELSA [Suspect]
     Active Substance: VANDETANIB
     Indication: PAPILLARY THYROID CANCER
     Route: 048
     Dates: start: 20170301
  4. CAPRELSA [Suspect]
     Active Substance: VANDETANIB
     Indication: RENAL CELL CARCINOMA
     Route: 048
     Dates: start: 201703

REACTIONS (2)
  - Blood creatinine increased [Not Recovered/Not Resolved]
  - Product use in unapproved indication [Unknown]

NARRATIVE: CASE EVENT DATE: 20170315
